FAERS Safety Report 17207068 (Version 1)
Quarter: 2019Q4

REPORT INFORMATION
  Report Type: Spontaneous
  Country: US (occurrence: US)
  Receive Date: 20191227
  Receipt Date: 20191227
  Transmission Date: 20200122
  Serious: No
  Sender: FDA-Public Use
  Company Number: US-AUROBINDO-AUR-APL-2019-001947

PATIENT

DRUGS (1)
  1. AMOXICILLIN CAPSULES USP 500 MG [Suspect]
     Active Substance: AMOXICILLIN
     Indication: LOWER RESPIRATORY TRACT INFECTION
     Dosage: 1 DOSAGE FORM, 3 TIMES A DAY
     Route: 048
     Dates: start: 20190107

REACTIONS (7)
  - Thirst decreased [Unknown]
  - Fatigue [Unknown]
  - Decreased appetite [Unknown]
  - Pain [Unknown]
  - Nausea [Unknown]
  - Nasopharyngitis [Unknown]
  - Influenza [Unknown]
